FAERS Safety Report 25314206 (Version 2)
Quarter: 2025Q3

REPORT INFORMATION
  Report Type: Report from Study
  Country: US (occurrence: US)
  Receive Date: 20250514
  Receipt Date: 20250706
  Transmission Date: 20251020
  Serious: Yes (Hospitalization, Other)
  Sender: ABBVIE
  Company Number: US-ABBVIE-6271610

PATIENT
  Sex: Female

DRUGS (3)
  1. HUMIRA [Suspect]
     Active Substance: ADALIMUMAB
     Indication: Product used for unknown indication
     Route: 058
     Dates: start: 20170313
  2. HUMIRA [Suspect]
     Active Substance: ADALIMUMAB
     Route: 058
  3. IRON [Concomitant]
     Active Substance: IRON
     Indication: Product used for unknown indication

REACTIONS (6)
  - Hiatus hernia [Recovering/Resolving]
  - Fatigue [Unknown]
  - Full blood count decreased [Unknown]
  - Psoriasis [Recovering/Resolving]
  - Rash papular [Recovering/Resolving]
  - Weight increased [Recovering/Resolving]
